FAERS Safety Report 6274133-1 (Version None)
Quarter: 2009Q3

REPORT INFORMATION
  Report Type: 
  Country: None (occurrence: None)
  Receive Date: 20090720
  Receipt Date: 20090710
  Transmission Date: 20100115
  Serious: Yes (Life-Threatening, Hospitalization)
  Sender: FDA-Public Use
  Company Number: PHHO2009DE08787

PATIENT
  Sex: Female
  Weight: 70 kg

DRUGS (7)
  1. STI571/CGP57148B T35717+CAPS [Suspect]
     Indication: ACUTE LYMPHOCYTIC LEUKAEMIA
     Dosage: 100 MG
     Route: 048
  2. CYCLOPHOSPHAMIDE [Suspect]
     Dosage: 1770 MG
     Route: 042
     Dates: start: 20090602
  3. METHOTREXATE [Suspect]
     Dosage: 15 MG
     Route: 037
     Dates: start: 20060401, end: 20090703
  4. CYTARABINE [Suspect]
     Dosage: 1596 MG
     Route: 042
     Dates: start: 20060401, end: 20090621
  5. MERCAPTOPURINE [Suspect]
     Dosage: UNK
     Route: 048
     Dates: start: 20060401, end: 20090622
  6. DIFLUCAN [Concomitant]
  7. ACYCLOVIR [Concomitant]

REACTIONS (5)
  - DIZZINESS [None]
  - EAR DISCOMFORT [None]
  - HEADACHE [None]
  - SUBDURAL HYGROMA [None]
  - VOMITING [None]
